FAERS Safety Report 6760306-8 (Version None)
Quarter: 2010Q2

REPORT INFORMATION
  Report Type: 
  Country: None (occurrence: None)
  Receive Date: 20100608
  Receipt Date: 20100601
  Transmission Date: 20101027
  Serious: Yes (Death)
  Sender: FDA-Public Use
  Company Number: RS-ROXANE LABORATORIES, INC.-2010-RO-00672RO

PATIENT
  Age: 54 Year
  Sex: Female

DRUGS (2)
  1. DEXAMETHASONE [Suspect]
     Indication: PEMPHIGUS
     Route: 042
  2. CYCLOPHOSPHAMIDE [Suspect]
     Indication: PEMPHIGUS

REACTIONS (2)
  - RENAL TUBULAR NECROSIS [None]
  - RHABDOMYOLYSIS [None]
